FAERS Safety Report 9805415 (Version 1)
Quarter: 2014Q1

REPORT INFORMATION
  Report Type: Spontaneous
  Country: US (occurrence: US)
  Receive Date: 20140109
  Receipt Date: 20140109
  Transmission Date: 20141002
  Serious: Yes (Death, Other)
  Sender: FDA-Public Use
  Company Number: US-UCBSA-108463

PATIENT
  Age: 86 Year
  Sex: Female

DRUGS (8)
  1. ACETAMINOPHEN /HYDROCODONE [Suspect]
     Dosage: ROUTE: INGESTION
     Route: 048
  2. ISOSORBIDE MONONITRATE [Suspect]
     Dosage: ROUTE: INGESTION
     Route: 048
  3. AMLODIPINE [Suspect]
     Dosage: ROUTE: INGESTION
     Route: 048
  4. DOXAZOSIN [Suspect]
     Dosage: ROUTE : INGESTION, EXTENDED RELEASE
     Route: 048
  5. ESCITALOPRAM [Suspect]
     Dosage: ROUTE: INGESTION
     Route: 048
  6. WARFARIN [Suspect]
     Dosage: ROUTE: INGESTION
     Route: 048
  7. FUROSEMIDE [Suspect]
     Dosage: ROUTE: INGESTION
     Route: 048
  8. LEVOTHYROXINE [Suspect]
     Dosage: ROUTE: INGESTION
     Route: 048

REACTIONS (1)
  - Completed suicide [Fatal]
